FAERS Safety Report 16123883 (Version 1)
Quarter: 2019Q1

REPORT INFORMATION
  Report Type: Spontaneous
  Country: BR (occurrence: BR)
  Receive Date: 20190327
  Receipt Date: 20190327
  Transmission Date: 20190418
  Serious: Yes (Other)
  Sender: FDA-Public Use
  Company Number: BR-ANIPHARMA-2019-BR-000020

PATIENT
  Age: 61 Year
  Sex: Male

DRUGS (2)
  1. BICALUTAMIDE. [Suspect]
     Active Substance: BICALUTAMIDE
     Indication: PROSTATE CANCER
     Dosage: BID
     Route: 048
     Dates: start: 2019, end: 2019
  2. ZOLADEX LA [Suspect]
     Active Substance: GOSERELIN ACETATE
     Dosage: 10.8 MG Q3MO
     Route: 058
     Dates: start: 2016

REACTIONS (3)
  - Limb injury [Not Recovered/Not Resolved]
  - Off label use [Recovered/Resolved]
  - Tooth loss [Recovered/Resolved]
